FAERS Safety Report 22820118 (Version 5)
Quarter: 2023Q4

REPORT INFORMATION
  Report Type: Spontaneous
  Country: US (occurrence: US)
  Receive Date: 20230814
  Receipt Date: 20231204
  Transmission Date: 20240110
  Serious: No
  Sender: FDA-Public Use
  Company Number: US-PFIZER INC-PV202300137378

PATIENT
  Age: 13 Year
  Sex: Female
  Weight: 45.81 kg

DRUGS (1)
  1. GENOTROPIN [Suspect]
     Active Substance: SOMATROPIN
     Dosage: 2.6 MG (6 DAYS A WEEK)

REACTIONS (3)
  - Drug dose omission by device [Unknown]
  - Device leakage [Unknown]
  - Device operational issue [Unknown]
